FAERS Safety Report 7504790-0 (Version None)
Quarter: 2011Q2

REPORT INFORMATION
  Report Type: 
  Country: None (occurrence: None)
  Receive Date: 20110525
  Receipt Date: 20101122
  Transmission Date: 20111010
  Serious: Yes (Other)
  Sender: FDA-Public Use
  Company Number: US-AMGEN-USASP2011016659

PATIENT
  Age: 86 Year
  Sex: Female

DRUGS (5)
  1. ARANESP [Suspect]
     Indication: NEPHROGENIC ANAEMIA
     Dosage: 40 A?G, QMO
     Dates: start: 20070101
  2. CALCITRIOL [Concomitant]
  3. SYNTHROID [Concomitant]
  4. ZOCOR [Concomitant]
  5. BENICAR [Concomitant]

REACTIONS (2)
  - ARTHRALGIA [None]
  - DEEP VEIN THROMBOSIS [None]
